FAERS Safety Report 5251374-3 (Version None)
Quarter: 2007Q1

REPORT INFORMATION
  Report Type: 
  Country: None (occurrence: None)
  Receive Date: 20070228
  Receipt Date: 20060502
  Transmission Date: 20070707
  Serious: Yes (Hospitalization, Other)
  Sender: FDA-Public Use
  Company Number: US-GLAXOSMITHKLINE-A0604059A

PATIENT
  Age: 44 Year
  Sex: Male

DRUGS (8)
  1. LAMICTAL [Suspect]
     Indication: BIPOLAR DISORDER
     Dosage: 200MG PER DAY
     Route: 048
     Dates: start: 20060216, end: 20060101
  2. PAMELOR [Concomitant]
  3. SEROQUEL [Concomitant]
  4. TRAZODONE HCL [Concomitant]
  5. LOPID [Concomitant]
  6. COGENTIN [Concomitant]
  7. PRILOSEC [Concomitant]
  8. BUSPAR [Concomitant]

REACTIONS (1)
  - AGRANULOCYTOSIS [None]
